FAERS Safety Report 8861325 (Version 1)
Quarter: 2012Q4

REPORT INFORMATION
  Report Type: Spontaneous
  Country: US (occurrence: None)
  Receive Date: 20121023
  Receipt Date: 20121023
  Transmission Date: 20130627
  Serious: Yes (Hospitalization)
  Sender: FDA-Public Use
  Company Number: 2012-5102

PATIENT
  Age: 42 Year
  Sex: Female
  Weight: 70 kg

DRUGS (1)
  1. DYSPORT [Suspect]
     Indication: GLABELLAR FROWN LINES
     Dosage: Not reported (1 in 1 Cycle(s)), Unknown
     Dates: start: 201208, end: 201208

REACTIONS (3)
  - Urticaria [None]
  - Rash pruritic [None]
  - Pain [None]
